FAERS Safety Report 6636438-1 (Version None)
Quarter: 2010Q1

REPORT INFORMATION
  Report Type: 
  Country: None (occurrence: None)
  Receive Date: 20100311
  Receipt Date: 20100223
  Transmission Date: 20100710
  Serious: Yes (Other)
  Sender: FDA-Public Use
  Company Number: 2010SP011526

PATIENT
  Age: 57 Year
  Sex: Female

DRUGS (3)
  1. BETAMETHASONE VALERATE [Suspect]
     Indication: ARTHROPOD STING
     Dosage: 2 DF; QD; TOP
     Route: 061
     Dates: start: 20080722, end: 20080722
  2. LOBIVON [Concomitant]
  3. METHOTREXATE [Concomitant]

REACTIONS (2)
  - ANGIOEDEMA [None]
  - URTICARIA [None]
